FAERS Safety Report 8947683 (Version 1)
Quarter: 2012Q4

REPORT INFORMATION
  Report Type: Report from Study
  Country: CH (occurrence: US)
  Receive Date: 20121204
  Receipt Date: 20121204
  Transmission Date: 20130627
  Serious: Yes (Hospitalization)
  Sender: FDA-Public Use
  Company Number: US-BRISTOL-MYERS SQUIBB COMPANY-17158304

PATIENT
  Age: 52 Year
  Sex: Male
  Weight: 113.1 kg

DRUGS (5)
  1. CETUXIMAB [Suspect]
     Indication: HEAD AND NECK CANCER
     Dosage: recent dose 6Jun10
  2. CISPLATIN [Suspect]
     Indication: HEAD AND NECK CANCER
  3. BEVACIZUMAB [Suspect]
     Indication: HEAD AND NECK CANCER
     Dosage: recent dose 6Jun10
  4. OXYCODONE [Concomitant]
     Route: 048
  5. REGLAN [Concomitant]
     Route: 048

REACTIONS (7)
  - Thrombosis [Unknown]
  - Syncope [Recovered/Resolved]
  - Dehydration [Recovered/Resolved]
  - Weight decreased [Unknown]
  - Failure to thrive [Unknown]
  - Nausea [Unknown]
  - Electrolyte imbalance [Unknown]
